FAERS Safety Report 10029870 (Version 1)
Quarter: 2014Q1

REPORT INFORMATION
  Report Type: Spontaneous
  Country: US (occurrence: None)
  Receive Date: 20140319
  Receipt Date: 20140319
  Transmission Date: 20141002
  Serious: Yes (Hospitalization)
  Sender: FDA-Public Use
  Company Number: 2014US000721

PATIENT
  Age: 38 Year
  Sex: Male

DRUGS (8)
  1. GLASSIA (ALPHA L-PROTEINASE INHIBITOR) SOLUTION FOR INJECTION [Suspect]
     Indication: PRODUCT USED FOR UNKNOWN INDICATION
     Route: 042
     Dates: start: 20130813
  2. ALBUTEROL SULFATE [Concomitant]
  3. ADVAIR [Concomitant]
  4. METOPROLOL [Concomitant]
  5. GABAPENTIN [Concomitant]
  6. DILTIAZEM [Concomitant]
  7. ASPIRIN [Concomitant]
  8. LORAZEPAM [Concomitant]

REACTIONS (2)
  - Pulmonary embolism [None]
  - Nausea [None]
